FAERS Safety Report 10235258 (Version 1)
Quarter: 2014Q2

REPORT INFORMATION
  Report Type: Spontaneous
  Country: US (occurrence: None)
  Receive Date: 20140611
  Receipt Date: 20140611
  Transmission Date: 20141212
  Serious: Yes (Life-Threatening, Hospitalization)
  Sender: FDA-Public Use
  Company Number: FK201402202

PATIENT
  Age: 52 Year
  Sex: Female
  Weight: 63.5 kg

DRUGS (4)
  1. FLUOROURACIL INJECTION, USP (FLUOROURACIL) (FLUOROURACIL) [Suspect]
     Indication: ADENOCARCINOMA OF COLON
     Route: 040
     Dates: start: 20130528
  2. LEUCOVORIN CALCIUM [Suspect]
     Indication: ADENOCARCINOMA OF COLON
     Route: 042
     Dates: start: 20130528
  3. ELOXATIN (OXALIPLATIN) [Suspect]
     Indication: ADENOCARCINOMA OF COLON
     Dates: start: 20130528
  4. CELECOXIB (CELECOXIB) [Suspect]
     Indication: ADENOCARCINOMA OF COLON

REACTIONS (1)
  - Hypertensive crisis [None]
